FAERS Safety Report 11194084 (Version 2)
Quarter: 2015Q3

REPORT INFORMATION
  Report Type: Spontaneous
  Country: FR (occurrence: FR)
  Receive Date: 20150616
  Receipt Date: 20150717
  Transmission Date: 20151125
  Serious: Yes (Hospitalization, Other)
  Sender: FDA-Public Use
  Company Number: FR-ABBVIE-15P-056-1409374-00

PATIENT
  Age: 46 Year
  Sex: Female

DRUGS (1)
  1. DEPAKINE CHRONO [Suspect]
     Active Substance: VALPROATE SODIUM
     Indication: EPILEPSY
     Route: 048
     Dates: start: 1984, end: 1998

REACTIONS (10)
  - Haemorrhage [Recovered/Resolved]
  - Unevaluable event [Unknown]
  - Weight increased [Unknown]
  - Amenorrhoea [Unknown]
  - Tremor [Unknown]
  - Confusional state [Unknown]
  - Pain [Unknown]
  - Exposure during pregnancy [Unknown]
  - Chronic hepatitis [Not Recovered/Not Resolved]
  - Vomiting [Recovering/Resolving]

NARRATIVE: CASE EVENT DATE: 1996
